FAERS Safety Report 5058783-6 (Version None)
Quarter: 2006Q3

REPORT INFORMATION
  Report Type: 
  Country: None (occurrence: None)
  Receive Date: 20060721
  Receipt Date: 20050912
  Transmission Date: 20061208
  Serious: No
  Sender: FDA-Public Use
  Company Number: US-AMGEN-US150267

PATIENT
  Sex: Female

DRUGS (1)
  1. EPOGEN [Suspect]
     Indication: ANAEMIA
     Route: 030

REACTIONS (2)
  - BLOOD PRESSURE INCREASED [None]
  - HYPOVENTILATION [None]
